FAERS Safety Report 11716148 (Version 2)
Quarter: 2015Q4

REPORT INFORMATION
  Report Type: Spontaneous
  Country: US (occurrence: US)
  Receive Date: 20151104
  Receipt Date: 20151110
  Transmission Date: 20160304
  Serious: No
  Sender: FDA-Public Use
  Company Number: US-ELI_LILLY_AND_COMPANY-US201107004697

PATIENT
  Sex: Female

DRUGS (2)
  1. FORTEO [Suspect]
     Active Substance: TERIPARATIDE
     Indication: OSTEOPOROSIS
     Dosage: 20 UG, QD
  2. FORTEO [Suspect]
     Active Substance: TERIPARATIDE
     Dosage: 20 UG, QD

REACTIONS (8)
  - Back pain [Unknown]
  - Insomnia [Unknown]
  - Depressed mood [Unknown]
  - Somnolence [Not Recovered/Not Resolved]
  - Lethargy [Unknown]
  - Weight loss poor [Unknown]
  - Feeling abnormal [Unknown]
  - Irritability [Unknown]
